FAERS Safety Report 10920843 (Version 1)
Quarter: 2015Q1

REPORT INFORMATION
  Report Type: Spontaneous
  Country: US (occurrence: None)
  Receive Date: 20150313
  Receipt Date: 20150313
  Transmission Date: 20150721
  Serious: Yes (Hospitalization)
  Sender: FDA-Public Use
  Company Number: None

PATIENT
  Age: 59 Year
  Sex: Female
  Weight: 65.77 kg

DRUGS (7)
  1. ASPIRIN. [Concomitant]
     Active Substance: ASPIRIN
  2. TIMOLOL [Concomitant]
     Active Substance: TIMOLOL
  3. COENZYME Q10 [Concomitant]
     Active Substance: UBIDECARENONE
  4. IRON [Concomitant]
     Active Substance: IRON
  5. ZOFRAN [Suspect]
     Active Substance: ONDANSETRON HYDROCHLORIDE
     Indication: ABDOMINAL PAIN UPPER
  6. MULTI VITAMIN [Concomitant]
     Active Substance: VITAMINS
  7. SINVASTATIN [Concomitant]
     Active Substance: SIMVASTATIN

REACTIONS (4)
  - Seizure [None]
  - Cardiac arrest [None]
  - Fall [None]
  - Eye injury [None]

NARRATIVE: CASE EVENT DATE: 20130612
